FAERS Safety Report 17566955 (Version 1)
Quarter: 2020Q1

REPORT INFORMATION
  Report Type: Spontaneous
  Country: CN (occurrence: CN)
  Receive Date: 20200320
  Receipt Date: 20200320
  Transmission Date: 20200409
  Serious: Yes (Other)
  Sender: FDA-Public Use
  Company Number: NVSC2020CN080092

PATIENT
  Age: 60 Year
  Sex: Male

DRUGS (1)
  1. LAPATINIB [Suspect]
     Active Substance: LAPATINIB
     Indication: CHOLANGIOCARCINOMA
     Dosage: 1250 MG, QD (2 CYCLE)
     Route: 065

REACTIONS (7)
  - Cholangiocarcinoma [Unknown]
  - Gastrointestinal toxicity [Unknown]
  - Malignant neoplasm progression [Unknown]
  - Vomiting [Unknown]
  - Product use in unapproved indication [Unknown]
  - Constipation [Unknown]
  - Nausea [Unknown]
